FAERS Safety Report 23667371 (Version 1)
Quarter: 2024Q1

REPORT INFORMATION
  Report Type: Spontaneous
  Country: US (occurrence: US)
  Receive Date: 20240325
  Receipt Date: 20240325
  Transmission Date: 20240410
  Serious: No
  Sender: FDA-Public Use
  Company Number: US-AUROBINDO-AUR-APL-2023-008456

PATIENT
  Age: 14 Year
  Sex: Female

DRUGS (9)
  1. SERTRALINE HYDROCHLORIDE [Suspect]
     Active Substance: SERTRALINE HYDROCHLORIDE
     Indication: Obsessive-compulsive disorder
     Dosage: 100 MILLIGRAM (START DATE AS 26 JAN PATIENT HAS BEEN TAKING 150 MG A DAY)
     Route: 048
  2. SERTRALINE HYDROCHLORIDE [Suspect]
     Active Substance: SERTRALINE HYDROCHLORIDE
     Indication: Anxiety
     Dosage: 50 MILLIGRAM (START DATE AS 26 JAN PATIENT HAS BEEN TAKING 150 MG A DAY)
     Route: 048
  3. SERTRALINE HYDROCHLORIDE [Suspect]
     Active Substance: SERTRALINE HYDROCHLORIDE
     Indication: Depression
  4. RISPERIDONE [Concomitant]
     Active Substance: RISPERIDONE
     Indication: Depression
     Dosage: UNK
     Route: 065
     Dates: start: 202006
  5. RISPERIDONE [Concomitant]
     Active Substance: RISPERIDONE
     Indication: Anxiety
  6. RISPERIDONE [Concomitant]
     Active Substance: RISPERIDONE
     Indication: Obsessive-compulsive disorder
  7. COGENTIN [Concomitant]
     Active Substance: BENZTROPINE MESYLATE
     Indication: Depression
     Dosage: UNK
     Route: 065
     Dates: start: 202006
  8. COGENTIN [Concomitant]
     Active Substance: BENZTROPINE MESYLATE
     Indication: Anxiety
  9. COGENTIN [Concomitant]
     Active Substance: BENZTROPINE MESYLATE
     Indication: Obsessive-compulsive disorder

REACTIONS (3)
  - Weight increased [Recovered/Resolved]
  - Drug ineffective [Unknown]
  - Product substitution issue [Unknown]
